FAERS Safety Report 5408774-8 (Version None)
Quarter: 2007Q3

REPORT INFORMATION
  Report Type: 
  Country: None (occurrence: None)
  Receive Date: 20070808
  Receipt Date: 20070730
  Transmission Date: 20080115
  Serious: Yes (Other)
  Sender: FDA-Public Use
  Company Number: GB-AMGEN-US231456

PATIENT
  Sex: Female
  Weight: 64 kg

DRUGS (9)
  1. ENBREL [Suspect]
     Indication: RHEUMATOID ARTHRITIS
     Route: 058
     Dates: start: 20060616, end: 20070401
  2. FOLIC ACID [Concomitant]
     Route: 048
     Dates: start: 20000307
  3. LEVOTHYROXINE SODIUM [Concomitant]
     Route: 048
  4. DICLOFENAC [Concomitant]
     Route: 048
  5. ACETAMINOPHEN [Concomitant]
     Dosage: PRN
     Route: 048
  6. SULFASALAZINE [Concomitant]
     Route: 048
     Dates: start: 20010629
  7. FERROUS SULFATE [Concomitant]
     Route: 048
  8. METHOTREXATE SODIUM [Concomitant]
     Route: 048
     Dates: start: 20000207
  9. LANSOPRAZOLE [Concomitant]
     Route: 048

REACTIONS (1)
  - BREAST CANCER [None]
